FAERS Safety Report 15793965 (Version 1)
Quarter: 2019Q1

REPORT INFORMATION
  Report Type: Spontaneous
  Country: KR (occurrence: KR)
  Receive Date: 20190107
  Receipt Date: 20190107
  Transmission Date: 20190417
  Serious: Yes (Other)
  Sender: FDA-Public Use
  Company Number: KR-NORTHSTAR HEALTHCARE HOLDINGS-KR-2018NSR000169

PATIENT
  Age: 49 Year
  Sex: Male

DRUGS (1)
  1. ALLOPURINOL. [Suspect]
     Active Substance: ALLOPURINOL
     Indication: GOUT
     Dosage: 100 MG, QD

REACTIONS (1)
  - Drug reaction with eosinophilia and systemic symptoms [Unknown]
